FAERS Safety Report 5404609-8 (Version None)
Quarter: 2007Q3

REPORT INFORMATION
  Report Type: 
  Country: None (occurrence: None)
  Receive Date: 20070713
  Receipt Date: 20070201
  Transmission Date: 20080115
  Serious: Yes (Hospitalization)
  Sender: FDA-Public Use
  Company Number: US-JNJFOC-20060302625

PATIENT
  Age: 29 Year
  Sex: Female

DRUGS (3)
  1. ORTHO EVRA [Suspect]
     Indication: DRUG USE FOR UNKNOWN INDICATION
     Dosage: TRANSDERMAL
     Route: 062
     Dates: start: 20030101, end: 20030301
  2. ALLEGRA [Concomitant]
  3. NASAL SPRAY (NASAL DECONGESTANTS FOR SYSTEMIC USE) [Concomitant]

REACTIONS (1)
  - PULMONARY EMBOLISM [None]
